FAERS Safety Report 17688866 (Version 1)
Quarter: 2020Q2

REPORT INFORMATION
  Report Type: Spontaneous
  Country: CA (occurrence: CA)
  Receive Date: 20200421
  Receipt Date: 20200421
  Transmission Date: 20200714
  Serious: Yes (Other)
  Sender: FDA-Public Use
  Company Number: CA-SA-2020SA100693

PATIENT

DRUGS (20)
  1. PREGABALIN. [Suspect]
     Active Substance: PREGABALIN
     Indication: PRODUCT USED FOR UNKNOWN INDICATION
  2. HYDROXYCHLOROQUINE SULFATE. [Suspect]
     Active Substance: HYDROXYCHLOROQUINE SULFATE
     Indication: PRODUCT USED FOR UNKNOWN INDICATION
     Dosage: 400 MG
     Route: 048
  3. DEMEROL [Suspect]
     Active Substance: MEPERIDINE HYDROCHLORIDE
     Indication: RHEUMATOID ARTHRITIS
  4. METHOTREXATE. [Suspect]
     Active Substance: METHOTREXATE
     Indication: RHEUMATOID ARTHRITIS
  5. HUMIRA [Suspect]
     Active Substance: ADALIMUMAB
     Indication: RHEUMATOID ARTHRITIS
     Dosage: 400 MG
     Route: 058
  6. LEFLUNOMIDE. [Suspect]
     Active Substance: LEFLUNOMIDE
     Indication: PRODUCT USED FOR UNKNOWN INDICATION
  7. BISOPROLOL SALT NOT SPECIFIED [Suspect]
     Active Substance: BISOPROLOL
     Indication: PRODUCT USED FOR UNKNOWN INDICATION
  8. CELECOXIB. [Suspect]
     Active Substance: CELECOXIB
     Indication: PRODUCT USED FOR UNKNOWN INDICATION
     Dosage: 200 MG, QD (1 DF, EVERY 1 DAY)
     Route: 048
  9. ARTHROTEC [Suspect]
     Active Substance: DICLOFENAC SODIUM\MISOPROSTOL
     Indication: RHEUMATOID ARTHRITIS
  10. LEFLUNOMIDE. [Suspect]
     Active Substance: LEFLUNOMIDE
     Dosage: UNK
  11. CEFACLOR. [Suspect]
     Active Substance: CEFACLOR
     Indication: PRODUCT USED FOR UNKNOWN INDICATION
  12. SULFASALAZINE. [Suspect]
     Active Substance: SULFASALAZINE
     Indication: RHEUMATOID ARTHRITIS
  13. MEPERIDINE HYDROCHLORIDE. [Suspect]
     Active Substance: MEPERIDINE HYDROCHLORIDE
     Indication: RHEUMATOID ARTHRITIS
  14. ARAVA [Suspect]
     Active Substance: LEFLUNOMIDE
     Indication: RHEUMATOID ARTHRITIS
  15. NORFLOXACIN [Suspect]
     Active Substance: NORFLOXACIN
     Indication: PRODUCT USED FOR UNKNOWN INDICATION
  16. PREDNISONE. [Suspect]
     Active Substance: PREDNISONE
     Indication: RHEUMATOID ARTHRITIS
  17. ERYTHROMYCIN. [Suspect]
     Active Substance: ERYTHROMYCIN
     Indication: PRODUCT USED FOR UNKNOWN INDICATION
  18. ERYTHROMYCIN. [Suspect]
     Active Substance: ERYTHROMYCIN
     Indication: PRODUCT USED FOR UNKNOWN INDICATION
  19. LEVOFLOXACIN. [Suspect]
     Active Substance: LEVOFLOXACIN
     Indication: PRODUCT USED FOR UNKNOWN INDICATION
  20. METRONIDAZOLE. [Suspect]
     Active Substance: METRONIDAZOLE
     Indication: RHEUMATOID ARTHRITIS

REACTIONS (5)
  - Infection [Unknown]
  - International normalised ratio fluctuation [Unknown]
  - Drug hypersensitivity [Unknown]
  - Drug intolerance [Unknown]
  - Therapeutic product effect incomplete [Unknown]
